FAERS Safety Report 16829962 (Version 2)
Quarter: 2020Q1

REPORT INFORMATION
  Report Type: Spontaneous
  Country: SE (occurrence: SE)
  Receive Date: 20190919
  Receipt Date: 20200326
  Transmission Date: 20200409
  Serious: Yes (Other)
  Sender: FDA-Public Use
  Company Number: SE-ALLERGAN-1938222US

PATIENT
  Sex: Male

DRUGS (2)
  1. MESALAZINE UNK [Suspect]
     Active Substance: MESALAMINE
     Indication: COLITIS ULCERATIVE
     Dosage: 2 DF, QD
     Route: 048
     Dates: start: 1999, end: 2019
  2. PREDNISOLONE. [Concomitant]
     Active Substance: PREDNISOLONE

REACTIONS (1)
  - Pancytopenia [Recovering/Resolving]

NARRATIVE: CASE EVENT DATE: 2010
